FAERS Safety Report 5387381-X (Version None)
Quarter: 2007Q3

REPORT INFORMATION
  Report Type: 
  Country: None (occurrence: None)
  Receive Date: 20070703
  Receipt Date: 20070417
  Transmission Date: 20080115
  Serious: No
  Sender: FDA-Public Use
  Company Number: 2007PV032820

PATIENT
  Age: 34 Year
  Sex: Female
  Weight: 63.05 kg

DRUGS (3)
  1. SYMLIN [Suspect]
     Indication: TYPE 1 DIABETES MELLITUS
     Dosage: SEE IMAGE
     Route: 058
     Dates: start: 20070415, end: 20070416
  2. SYMLIN [Suspect]
     Indication: TYPE 1 DIABETES MELLITUS
     Dosage: SEE IMAGE
     Route: 058
     Dates: start: 20070417
  3. APIDRA [Concomitant]

REACTIONS (3)
  - INJECTION SITE IRRITATION [None]
  - NAUSEA [None]
  - RASH PRURITIC [None]
